FAERS Safety Report 14602249 (Version 1)
Quarter: 2018Q1

REPORT INFORMATION
  Report Type: Spontaneous
  Country: US (occurrence: US)
  Receive Date: 20180306
  Receipt Date: 20180306
  Transmission Date: 20180509
  Serious: Yes (Other)
  Sender: FDA-Public Use
  Company Number: US-ROCHE-2079185

PATIENT
  Age: 8 Year
  Sex: Female
  Weight: 25 kg

DRUGS (2)
  1. TAMIFLU [Suspect]
     Active Substance: OSELTAMIVIR PHOSPHATE
     Indication: ANTIVIRAL PROPHYLAXIS
     Dosage: TWO 45 MG PILLS A DAY ;ONGOING: NO
     Route: 048
     Dates: start: 20180214, end: 20180214
  2. TAMIFLU [Suspect]
     Active Substance: OSELTAMIVIR PHOSPHATE
     Indication: INFLUENZA
     Dosage: STARTED AT NIGHT -TOOK ONE PILL ONGOING: NO.
     Route: 048
     Dates: start: 20180214, end: 20180214

REACTIONS (11)
  - Unevaluable event [Not Recovered/Not Resolved]
  - Heart rate increased [Unknown]
  - Hallucination [Not Recovered/Not Resolved]
  - Fear [Not Recovered/Not Resolved]
  - Panic reaction [Not Recovered/Not Resolved]
  - Abnormal behaviour [Unknown]
  - Fear [Unknown]
  - Feeling abnormal [Unknown]
  - Blindness [Recovered/Resolved]
  - Personality change [Unknown]
  - Speech disorder [Recovered/Resolved]

NARRATIVE: CASE EVENT DATE: 20180215
